FAERS Safety Report 6572439-X (Version None)
Quarter: 2010Q1

REPORT INFORMATION
  Report Type: 
  Country: None (occurrence: None)
  Receive Date: 20100205
  Receipt Date: 20100125
  Transmission Date: 20100710
  Serious: Yes (Other)
  Sender: FDA-Public Use
  Company Number: US-PFIZER INC-2010014895

PATIENT
  Sex: Male
  Weight: 117.91 kg

DRUGS (14)
  1. LYRICA [Suspect]
     Indication: CHRONIC FATIGUE SYNDROME
     Dosage: 75 MG, 2X/DAY
     Route: 048
     Dates: start: 20091001
  2. TRUVADA [Concomitant]
     Dosage: UNK
  3. PREZISTA [Concomitant]
     Dosage: UNK
  4. NORVIR [Concomitant]
     Dosage: UNK
  5. LASIX [Concomitant]
     Dosage: UNK
  6. FAMVIR [Concomitant]
     Dosage: UNK
  7. MARINOL [Concomitant]
     Dosage: UNK
  8. UROXATRAL [Concomitant]
     Dosage: UNK
  9. EVOXAC [Concomitant]
     Indication: DRY MOUTH
     Dosage: UNK
  10. CYMBALTA [Concomitant]
     Dosage: UNK
  11. CRESTOR [Concomitant]
     Dosage: UNK
  12. SEROQUEL [Concomitant]
     Dosage: UNK
  13. TRICOR [Concomitant]
     Dosage: UNK
  14. BENADRYL [Concomitant]
     Dosage: UNK

REACTIONS (9)
  - ARTHRALGIA [None]
  - BACTERIAL INFECTION [None]
  - DIZZINESS [None]
  - FEELING COLD [None]
  - HOT FLUSH [None]
  - HYPOTHYROIDISM [None]
  - NASOPHARYNGITIS [None]
  - WEIGHT INCREASED [None]
  - WITHDRAWAL SYNDROME [None]
